APPROVED DRUG PRODUCT: ZAVZPRET
Active Ingredient: ZAVEGEPANT HYDROCHLORIDE
Strength: EQ 10MG BASE/SPRAY
Dosage Form/Route: SPRAY, METERED;NASAL
Application: N216386 | Product #001
Applicant: PFIZER INC
Approved: Mar 9, 2023 | RLD: Yes | RS: Yes | Type: RX

PATENTS:
Patent 8481546 | Expires: Oct 7, 2031

EXCLUSIVITY:
Code: NCE | Date: Mar 9, 2028